FAERS Safety Report 9435415 (Version 1)
Quarter: 2013Q3

REPORT INFORMATION
  Report Type: Spontaneous
  Country: SY (occurrence: SY)
  Receive Date: 20130801
  Receipt Date: 20130801
  Transmission Date: 20140515
  Serious: Yes (Hospitalization, Disabling, Other)
  Sender: FDA-Public Use
  Company Number: SY-GLAXOSMITHKLINE-B0904545A

PATIENT
  Age: 19 Year
  Sex: Male

DRUGS (1)
  1. ARIXTRA [Suspect]
     Indication: LIGAMENT OPERATION
     Route: 065

REACTIONS (2)
  - Cellulitis [Unknown]
  - Haematoma [Unknown]
